FAERS Safety Report 11466917 (Version 3)
Quarter: 2015Q3

REPORT INFORMATION
  Report Type: Spontaneous
  Country: JP (occurrence: JP)
  Receive Date: 20150908
  Receipt Date: 20150930
  Transmission Date: 20151125
  Serious: Yes (Other)
  Sender: FDA-Public Use
  Company Number: JP-009507513-1509JPN002855

PATIENT
  Age: 3 Year
  Sex: Male
  Weight: 10.8 kg

DRUGS (11)
  1. PIMOBENDAN [Concomitant]
     Active Substance: PIMOBENDAN
     Dosage: DAILY DOSAGE UNKNOWN
     Route: 065
  2. SPIRONOLACTONE. [Suspect]
     Active Substance: SPIRONOLACTONE
     Indication: CARDIAC FAILURE
     Dosage: 0.7 MG/KG, DIVIDED DOSE FREQUENCY UNKNOWN
     Route: 065
  3. FUROSEMIDE. [Concomitant]
     Active Substance: FUROSEMIDE
     Dosage: DAILY DOSAGE UNKNOWN
     Route: 065
  4. ENALART [Suspect]
     Active Substance: ENALAPRIL MALEATE
     Indication: CARDIAC FAILURE
     Dosage: 0.3 MG/KG, DIVIDED DOSE FREQUENCY UNKNOWN
     Route: 048
  5. DIGOXIN. [Concomitant]
     Active Substance: DIGOXIN
     Dosage: DAILY DOSAGE UNKNOWN
  6. CARVEDILOL. [Concomitant]
     Active Substance: CARVEDILOL
     Dosage: DAILY DOSAGE UNKNOWN
     Route: 048
  7. MK-0000 [Suspect]
     Active Substance: INVESTIGATIONAL PRODUCT
  8. CANDESARTAN CILEXETIL. [Suspect]
     Active Substance: CANDESARTAN CILEXETIL
     Indication: CARDIAC FAILURE
     Dosage: 0.2 MG/KG, DIVIDED DOSE FREQUENCY UNKNOWN
     Route: 048
  9. SILDENAFIL CITRATE. [Concomitant]
     Active Substance: SILDENAFIL CITRATE
     Dosage: DAILY DOSAGE UNKNOWN
     Route: 048
  10. ASPIRIN. [Concomitant]
     Active Substance: ASPIRIN
     Dosage: DAILY DOSAGE UNKNOWN
  11. WARFARIN POTASSIUM [Concomitant]
     Active Substance: WARFARIN POTASSIUM
     Dosage: DAILY DOSAGE UNKNOWN
     Route: 065

REACTIONS (4)
  - Hyperkalaemia [Recovering/Resolving]
  - Acute kidney injury [Recovering/Resolving]
  - Acidosis hyperchloraemic [Unknown]
  - Dehydration [Unknown]
